FAERS Safety Report 5731798-8 (Version None)
Quarter: 2008Q2

REPORT INFORMATION
  Report Type: 
  Country: None (occurrence: None)
  Receive Date: 20080506
  Receipt Date: 20080506
  Transmission Date: 20081010
  Serious: Yes (Hospitalization)
  Sender: FDA-Public Use
  Company Number: None

PATIENT
  Age: 54 Year
  Sex: Male
  Weight: 105 kg

DRUGS (2)
  1. RIBAVIRIN [Suspect]
     Indication: HEPATITIS C
     Dates: start: 20070810, end: 20080124
  2. PEG-INTRON [Suspect]
     Dosage: 180 MCG QWEEK SQ
     Route: 058
     Dates: start: 20070810, end: 20080124

REACTIONS (1)
  - ANAEMIA [None]
